FAERS Safety Report 15869557 (Version 2)
Quarter: 2019Q1

REPORT INFORMATION
  Report Type: Spontaneous
  Country: CA (occurrence: CA)
  Receive Date: 20190125
  Receipt Date: 20190131
  Transmission Date: 20190417
  Serious: Yes (Other)
  Sender: FDA-Public Use
  Company Number: CA-PFIZER INC-2019029058

PATIENT
  Age: 84 Year
  Sex: Male

DRUGS (5)
  1. ACETAMINOPHEN. [Suspect]
     Active Substance: ACETAMINOPHEN
     Indication: CAUDA EQUINA SYNDROME
     Dosage: 1000 MG, EVERY 6 HOURS
  2. MORPHINE SULFATE. [Suspect]
     Active Substance: MORPHINE SULFATE
     Indication: CAUDA EQUINA SYNDROME
     Dosage: 15 MG, 2X/DAY (LONG-ACTING)
  3. DEXAMETHASONE. [Suspect]
     Active Substance: DEXAMETHASONE
     Indication: CAUDA EQUINA SYNDROME
     Dosage: 8 MG, 2X/DAY
  4. PREGABALIN. [Suspect]
     Active Substance: PREGABALIN
     Indication: CAUDA EQUINA SYNDROME
     Dosage: 100 MG, 1X/DAY AT NIGHT
  5. METHADONE [Suspect]
     Active Substance: METHADONE HYDROCHLORIDE
     Indication: CAUDA EQUINA SYNDROME
     Dosage: 2 MG, 2X/DAY

REACTIONS (2)
  - Delirium [Unknown]
  - Somnolence [Unknown]
